FAERS Safety Report 5287904-5 (Version None)
Quarter: 2007Q2

REPORT INFORMATION
  Report Type: 
  Country: None (occurrence: None)
  Receive Date: 20070403
  Receipt Date: 20070403
  Transmission Date: 20071010
  Serious: No
  Sender: FDA-Public Use
  Company Number: None

PATIENT
  Age: 58 Year
  Sex: Male
  Weight: 68.4932 kg

DRUGS (1)
  1. FERROUS SULFATE TAB [Suspect]
     Dosage: 325 MG TID PO
     Route: 048

REACTIONS (1)
  - CONSTIPATION [None]
